FAERS Safety Report 9295237 (Version 1)
Quarter: 2013Q1

REPORT INFORMATION
  Report Type: Spontaneous
  Country: US (occurrence: None)
  Receive Date: 20121227
  Receipt Date: 20121227
  Transmission Date: 20140127
  Serious: No
  Sender: FDA-Public Use
  Company Number: PHEH2012US021495

PATIENT
  Age: 59 Year
  Sex: Female

DRUGS (14)
  1. AFINITOR [Suspect]
     Route: 048
  2. FEMARA (LETROZOLE) [Concomitant]
  3. CALCIUM D (CALCIUM CARBONATE, COLECALCIFEROL) [Concomitant]
  4. OXYCOD (OXYCODONE HYDROCHLORIDE) [Concomitant]
  5. APAP (PARACETAMOL) [Concomitant]
  6. LEXAPRO (ESCITALOPRAM OLATATE) [Concomitant]
  7. CARVEDIL0L (CARVEDILOL) [Concomitant]
  8. MULTI-VITAMINS (CALCIUM PANTOTHENATE, FOLIC ACID, VITAMINS NOS) [Concomitant]
  9. VASOTEC (ENALAPRIL MALEATE) [Concomitant]
  10. ATIVAN (LORAZEPAM) [Concomitant]
  11. CRESTOR (ROSUVASTIN CALCIUM) [Concomitant]
  12. LAXATIVE (SENNOSIDE A+B) [Concomitant]
  13. BONIVA (IBANDRONATE SODIUM) [Concomitant]
  14. ROBITUSSIN (AMYLMETACRESOL, DICHLOROBENZYL ALCOHOL) [Concomitant]

REACTIONS (2)
  - Nausea [None]
  - Pruritus [None]
